FAERS Safety Report 9802811 (Version 1)
Quarter: 2014Q1

REPORT INFORMATION
  Report Type: Spontaneous
  Country: US (occurrence: None)
  Receive Date: 20140103
  Receipt Date: 20140103
  Transmission Date: 20141002
  Serious: Yes (Other)
  Sender: FDA-Public Use
  Company Number: None

PATIENT
  Age: 53 Year
  Sex: Female

DRUGS (4)
  1. XELJANZ [Suspect]
     Route: 048
     Dates: start: 20130812, end: 20140102
  2. VICODIN [Concomitant]
  3. AMLODIPINE [Concomitant]
  4. CHANTIX [Concomitant]

REACTIONS (2)
  - Pain [None]
  - Unevaluable event [None]
